FAERS Safety Report 5214484-2 (Version None)
Quarter: 2006Q4

REPORT INFORMATION
  Report Type: 
  Country: None (occurrence: None)
  Receive Date: 20061107
  Receipt Date: 20061003
  Transmission Date: 20070319
  Serious: No
  Sender: FDA-Public Use
  Company Number: 200614997BWH

PATIENT
  Age: 44 Year
  Sex: Male

DRUGS (2)
  1. LEVITRA [Suspect]
     Dosage: SEE IMAGE, ORAL
     Route: 048
     Dates: start: 20060101
  2. LEVITRA [Suspect]
     Dosage: SEE IMAGE, ORAL
     Route: 048
     Dates: start: 20060301

REACTIONS (2)
  - ERECTILE DYSFUNCTION [None]
  - RHINORRHOEA [None]
